FAERS Safety Report 22140061 (Version 1)
Quarter: 2023Q1

REPORT INFORMATION
  Report Type: Spontaneous
  Country: FR (occurrence: FR)
  Receive Date: 20230327
  Receipt Date: 20230327
  Transmission Date: 20230418
  Serious: Yes (Hospitalization)
  Sender: FDA-Public Use
  Company Number: None

PATIENT
  Age: 5 Year
  Sex: Male
  Weight: 23 kg

DRUGS (1)
  1. KEPPRA [Suspect]
     Active Substance: LEVETIRACETAM
     Indication: Product used for unknown indication
     Dosage: UNK (100MG ORAL SOLUTION 300ML)
     Route: 048
     Dates: start: 20220210

REACTIONS (5)
  - Vomiting [Unknown]
  - Aphasia [Unknown]
  - Headache [Unknown]
  - Vertigo [Unknown]
  - Myoclonus [Unknown]

NARRATIVE: CASE EVENT DATE: 20220210
